FAERS Safety Report 23786823 (Version 2)
Quarter: 2024Q2

REPORT INFORMATION
  Report Type: Spontaneous
  Country: NL (occurrence: NL)
  Receive Date: 20240426
  Receipt Date: 20240516
  Transmission Date: 20240716
  Serious: Yes (Other)
  Sender: FDA-Public Use
  Company Number: NL-LRB-00960289

PATIENT
  Age: 66 Year
  Sex: Female
  Weight: 66.5 kg

DRUGS (3)
  1. AMOXICILLIN\CLAVULANIC ACID [Suspect]
     Active Substance: AMOXICILLIN\CLAVULANIC ACID
     Indication: Paronychia
     Dosage: 1 DOSAGE FORM, 3 TIMES A DAY (3 X DAAGS 1 TABLET)
     Route: 065
     Dates: start: 20240122
  2. LOSARTAN [Concomitant]
     Active Substance: LOSARTAN
     Indication: Product used for unknown indication
     Dosage: UNK
     Route: 065
  3. CALCIUM\VITAMIN D [Concomitant]
     Active Substance: CALCIUM\VITAMIN D
     Indication: Product used for unknown indication
     Dosage: UNK
     Route: 065

REACTIONS (4)
  - Systemic lupus erythematosus [Recovering/Resolving]
  - Nasal mucosal disorder [Recovering/Resolving]
  - Aphthous ulcer [Recovering/Resolving]
  - Rash [Recovering/Resolving]
